FAERS Safety Report 16749549 (Version 1)
Quarter: 2019Q3

REPORT INFORMATION
  Report Type: Spontaneous
  Country: US (occurrence: US)
  Receive Date: 20190710
  Receipt Date: 20190710
  Transmission Date: 20191005
  Serious: No
  Sender: FDA-Public Use
  Company Number: None

PATIENT
  Age: 34 Year
  Sex: Female

DRUGS (1)
  1. BENLYSTA [Suspect]
     Active Substance: BELIMUMAB
     Dates: start: 201906, end: 201907

REACTIONS (3)
  - Systemic lupus erythematosus rash [None]
  - Rheumatoid arthritis [None]
  - Gait inability [None]

NARRATIVE: CASE EVENT DATE: 20190710
